FAERS Safety Report 18130163 (Version 1)
Quarter: 2020Q3

REPORT INFORMATION
  Report Type: Spontaneous
  Country: US (occurrence: US)
  Receive Date: 20200810
  Receipt Date: 20200810
  Transmission Date: 20201103
  Serious: Yes (Other)
  Sender: FDA-Public Use
  Company Number: None

PATIENT
  Sex: Female

DRUGS (1)
  1. DICLOFENAC SODIUM 75 MG [Suspect]
     Active Substance: DICLOFENAC SODIUM

REACTIONS (2)
  - Abdominal discomfort [None]
  - Drug intolerance [None]
